FAERS Safety Report 5619429-9 (Version None)
Quarter: 2008Q1

REPORT INFORMATION
  Report Type: 
  Country: None (occurrence: None)
  Receive Date: 20080109
  Receipt Date: 20070419
  Transmission Date: 20080703
  Serious: Yes (Hospitalization)
  Sender: FDA-Public Use
  Company Number: WAES 0704USA04569

PATIENT
  Sex: Female

DRUGS (2)
  1. ZETIA [Suspect]
     Dosage: 10 MG, PO
     Route: 048
  2. WARFARIN SODIUM [Suspect]
     Dosage: PO
     Route: 048

REACTIONS (3)
  - ADVERSE EVENT [None]
  - DRUG INTERACTION [None]
  - INTERNATIONAL NORMALISED RATIO INCREASED [None]
